FAERS Safety Report 10109863 (Version 3)
Quarter: 2014Q2

REPORT INFORMATION
  Report Type: Spontaneous
  Country: IT (occurrence: IT)
  Receive Date: 20140423
  Receipt Date: 20140527
  Transmission Date: 20141212
  Serious: Yes (Death, Hospitalization)
  Sender: FDA-Public Use
  Company Number: IT-ACCORD-023204

PATIENT
  Age: 62 Year
  Sex: Female

DRUGS (1)
  1. GEMCITABINE ACCORD [Suspect]
     Indication: PANCREATIC CARCINOMA METASTATIC
     Dosage: ACCORD GEMCITABINE (L01BC05). 1500 MG/SQM OF BODY SURFACE
     Route: 042
     Dates: start: 20140312, end: 20140319

REACTIONS (3)
  - Bronchopneumonia [Fatal]
  - Thrombocytopenia [Fatal]
  - Febrile neutropenia [Fatal]
